FAERS Safety Report 9989273 (Version 2)
Quarter: 2014Q2

REPORT INFORMATION
  Report Type: Spontaneous
  Country: JP (occurrence: JP)
  Receive Date: 20140310
  Receipt Date: 20140407
  Transmission Date: 20141212
  Serious: Yes (Hospitalization)
  Sender: FDA-Public Use
  Company Number: JP-JNJFOC-20140300762

PATIENT
  Age: 77 Year
  Sex: Female
  Weight: 44.9 kg

DRUGS (9)
  1. XARELTO [Suspect]
     Indication: CEREBROVASCULAR ACCIDENT PROPHYLAXIS
     Route: 048
     Dates: start: 20131031, end: 20131226
  2. XARELTO [Suspect]
     Indication: ATRIAL FIBRILLATION
     Route: 048
     Dates: start: 20131031, end: 20131226
  3. AMLODIN [Concomitant]
     Route: 048
  4. SENNOSIDE A+B [Concomitant]
     Route: 048
  5. LIVALO [Concomitant]
     Route: 048
  6. PURSENNID [Concomitant]
     Route: 048
  7. NEXIUM [Concomitant]
     Route: 048
  8. MAGLAX [Concomitant]
     Route: 048
  9. EDIROL [Concomitant]
     Route: 048

REACTIONS (1)
  - Anaemia [Recovered/Resolved]
